FAERS Safety Report 15291044 (Version 4)
Quarter: 2018Q3

REPORT INFORMATION
  Report Type: Report from Study
  Country: None (occurrence: PR)
  Receive Date: 20180817
  Receipt Date: 20180925
  Transmission Date: 20181010
  Serious: Yes (Hospitalization, Other)
  Sender: FDA-Public Use
  Company Number: PR-ABBVIE-18S-131-2452212-00

PATIENT
  Age: 75 Year
  Sex: Female
  Weight: 32.69 kg

DRUGS (8)
  1. SIMVASTATIN. [Concomitant]
     Active Substance: SIMVASTATIN
     Indication: DYSLIPIDAEMIA
     Dosage: DAILY
     Route: 048
  2. PANTOPRAZOLE [Concomitant]
     Active Substance: PANTOPRAZOLE
     Indication: GASTRITIS
     Dosage: DAILY
     Route: 048
  3. FOLIC ACID. [Concomitant]
     Active Substance: FOLIC ACID
     Indication: NUTRITIONAL SUPPLEMENTATION
     Dosage: DAILY
     Route: 048
  4. DUOPA [Suspect]
     Active Substance: CARBIDOPA\LEVODOPA
     Indication: PARKINSON^S DISEASE
     Route: 050
     Dates: start: 20180809, end: 20180811
  5. SERTRALINE [Concomitant]
     Active Substance: SERTRALINE HYDROCHLORIDE
     Indication: DEPRESSION
     Dosage: DAILY
     Route: 048
  6. METFORMIN [Concomitant]
     Active Substance: METFORMIN HYDROCHLORIDE
     Indication: TYPE 2 DIABETES MELLITUS
     Dosage: DAILY
     Route: 048
     Dates: start: 2008
  7. RIVASTIGMINE. [Concomitant]
     Active Substance: RIVASTIGMINE
     Indication: PARKINSON^S DISEASE
     Route: 048
  8. TEMAZEPAM. [Concomitant]
     Active Substance: TEMAZEPAM
     Indication: INSOMNIA
     Dosage: DAILY AT BED TIME
     Route: 048

REACTIONS (15)
  - Peritonitis [Recovered/Resolved]
  - Dehydration [Unknown]
  - Staphylococcus test positive [Unknown]
  - Decreased appetite [Unknown]
  - Abdominal pain [Unknown]
  - Depressed level of consciousness [Recovered/Resolved]
  - Decreased activity [Unknown]
  - Gastrointestinal wall thickening [Unknown]
  - Ischaemic cerebral infarction [Unknown]
  - Encephalopathy [Unknown]
  - Gastrostomy tube site complication [Not Recovered/Not Resolved]
  - Device connection issue [Not Recovered/Not Resolved]
  - Hyperglycaemia [Unknown]
  - Stoma site extravasation [Not Recovered/Not Resolved]
  - Sepsis [Recovered/Resolved]

NARRATIVE: CASE EVENT DATE: 2018
